FAERS Safety Report 6188531-8 (Version None)
Quarter: 2009Q2

REPORT INFORMATION
  Report Type: 
  Country: None (occurrence: None)
  Receive Date: 20090513
  Receipt Date: 20090430
  Transmission Date: 20091009
  Serious: Yes (Hospitalization, Disabling, Other)
  Sender: FDA-Public Use
  Company Number: US-PFIZER INC-2009183561

PATIENT
  Sex: Female
  Weight: 48.526 kg

DRUGS (21)
  1. NEURONTIN [Suspect]
     Indication: PAIN IN EXTREMITY
     Dates: start: 20070101
  2. LYRICA [Suspect]
     Indication: NEUROPATHY PERIPHERAL
     Dosage: 25 MG, 2X/DAY
     Dates: start: 20081208
  3. LYRICA [Suspect]
     Indication: COMPLEX REGIONAL PAIN SYNDROME
  4. CYMBALTA [Suspect]
  5. VYTORIN [Suspect]
  6. HUMALOG [Concomitant]
     Dosage: UNK
  7. LANTUS [Concomitant]
     Dosage: UNK
  8. FOSAMAX [Concomitant]
     Dosage: UNK
  9. ASPIRIN [Concomitant]
     Dosage: UNK
  10. ALTACE [Concomitant]
     Indication: CARDIAC DISORDER
     Dosage: UNK
  11. ATENOLOL [Concomitant]
     Dosage: UNK
  12. ZOCOR [Concomitant]
     Indication: HYPERCHOLESTEROLAEMIA
     Dosage: UNK
  13. HYDROCHLOROTHIAZIDE [Concomitant]
     Dosage: UNK
  14. MORPHINE SULFATE [Concomitant]
     Dosage: UNK
  15. AMOXICILLIN [Concomitant]
     Dosage: UNK
  16. TYLENOL [Concomitant]
     Dosage: UNK
  17. PENICILLIN NOS [Concomitant]
     Dosage: UNK
  18. CIPROFLOXACIN [Concomitant]
  19. SYNTHROID [Concomitant]
     Indication: HYPOTHYROIDISM
     Dosage: 0.15 MG, 1X/DAY
  20. DILAUDID [Concomitant]
     Indication: PAIN
  21. MORPHINE SULFATE [Concomitant]

REACTIONS (20)
  - ANOREXIA [None]
  - BREAST CANCER [None]
  - DIPLOPIA [None]
  - EXOPHTHALMOS [None]
  - EYE MOVEMENT DISORDER [None]
  - EYE SWELLING [None]
  - HYPERGLYCAEMIA [None]
  - HYPERSENSITIVITY [None]
  - LUMBAR SPINAL STENOSIS [None]
  - METAMORPHOPSIA [None]
  - NERVOUS SYSTEM DISORDER [None]
  - PAIN [None]
  - RASH GENERALISED [None]
  - SKIN DISCOLOURATION [None]
  - SOMNOLENCE [None]
  - STAPHYLOCOCCAL INFECTION [None]
  - SWELLING [None]
  - VISION BLURRED [None]
  - VISUAL ACUITY REDUCED [None]
  - WALKING DISABILITY [None]
